FAERS Safety Report 4896543-7 (Version None)
Quarter: 2006Q1

REPORT INFORMATION
  Report Type: 
  Country: None (occurrence: None)
  Receive Date: 20060131
  Receipt Date: 20060119
  Transmission Date: 20060701
  Serious: Yes (Hospitalization)
  Sender: FDA-Public Use
  Company Number: US-KINGPHARMUSA00001-K200600054

PATIENT
  Age: 89 Year
  Sex: Female

DRUGS (8)
  1. ALTACE [Suspect]
     Dosage: 5 MG, QD
     Route: 048
  2. LASILIX [Suspect]
     Dosage: 40 MG, QD
     Route: 048
     Dates: end: 20041215
  3. DEROXAT [Suspect]
     Dosage: 20 MG, QD
     Route: 048
     Dates: end: 20041212
  4. SINTROM [Concomitant]
     Dosage: 1 MG, UNK
     Route: 048
  5. CORDARONE [Concomitant]
     Dosage: 200 MG, UNK
     Route: 048
     Dates: end: 20041225
  6. AMLOR [Concomitant]
     Dosage: 10 MG, UNK
     Route: 048
  7. DIFFU K [Concomitant]
     Dosage: 3 U, UNK
     Route: 048
  8. VASTAREL ^BIOPHARMA^ [Concomitant]
     Dosage: 2 U, UNK
     Route: 048

REACTIONS (5)
  - BLOOD POTASSIUM DECREASED [None]
  - DRUG INTERACTION [None]
  - HYPOKALAEMIA [None]
  - HYPONATRAEMIA [None]
  - SOMNOLENCE [None]
